FAERS Safety Report 5754750-5 (Version None)
Quarter: 2008Q2

REPORT INFORMATION
  Report Type: 
  Country: None (occurrence: None)
  Receive Date: 20080530
  Receipt Date: 20080520
  Transmission Date: 20081010
  Serious: Yes (Other)
  Sender: FDA-Public Use
  Company Number: CA-PFIZER INC-2008045064

PATIENT
  Age: 43 Year
  Sex: Female

DRUGS (6)
  1. CHANTIX [Suspect]
     Indication: SMOKING CESSATION THERAPY
     Route: 048
  2. VIOKASE [Concomitant]
  3. RABEPRAZOLE SODIUM [Concomitant]
  4. NOVOSPIROTON [Concomitant]
  5. SYMBICORT [Concomitant]
  6. INSULIN HUMAN [Concomitant]
     Indication: DIABETES MELLITUS

REACTIONS (1)
  - BLOOD GLUCOSE INCREASED [None]
